FAERS Safety Report 16824815 (Version 1)
Quarter: 2019Q3

REPORT INFORMATION
  Report Type: Other
  Country: CN (occurrence: CN)
  Receive Date: 20190918
  Receipt Date: 20190918
  Transmission Date: 20191005
  Serious: Yes (Other)
  Sender: FDA-Public Use
  Company Number: CN-JIANGSU HENGRUI MEDICINE CO., LTD.-2074634

PATIENT
  Age: 55 Year
  Sex: Male
  Weight: 61 kg

DRUGS (4)
  1. REMIFENTANIL HYDROCHLORIDE. [Suspect]
     Active Substance: REMIFENTANIL HYDROCHLORIDE
     Route: 041
     Dates: start: 20190829, end: 20190829
  2. PROPOFOL MEDIUM AND LONG CHAIN FAT EMULSION INJECTION [Suspect]
     Active Substance: PROPOFOL
     Route: 041
     Dates: start: 20190829, end: 20190829
  3. CISATRACURIUM BESYLATE INJECTION USP, 10 MG/5 ML (2 MG/ML) AND 200 MG/ [Suspect]
     Active Substance: CISATRACURIUM BESYLATE
     Indication: INDUCTION AND MAINTENANCE OF ANAESTHESIA
     Route: 040
     Dates: start: 20190829, end: 20190829
  4. SUFENTANIL CITRATE. [Suspect]
     Active Substance: SUFENTANIL CITRATE
     Route: 040
     Dates: start: 20190829, end: 20190829

REACTIONS (2)
  - Tricuspid valve disease [Recovering/Resolving]
  - Dyspnoea [Recovering/Resolving]

NARRATIVE: CASE EVENT DATE: 20190829
